FAERS Safety Report 17114831 (Version 1)
Quarter: 2019Q4

REPORT INFORMATION
  Report Type: Report from Study
  Country: CA (occurrence: CA)
  Receive Date: 20191205
  Receipt Date: 20191205
  Transmission Date: 20200122
  Serious: Yes (Other)
  Sender: FDA-Public Use
  Company Number: CA-APOPHARMA INC-2019AP025676

PATIENT
  Sex: Female
  Weight: 77 kg

DRUGS (2)
  1. FERRIPROX [Suspect]
     Active Substance: DEFERIPRONE
     Indication: HAEMOSIDEROSIS
     Dosage: 39 MG/KG, QD
     Route: 048
     Dates: start: 20180612, end: 201904
  2. FERRIPROX [Suspect]
     Active Substance: DEFERIPRONE
     Indication: APLASIA PURE RED CELL
     Dosage: 13 MG/KG, BID
     Route: 048
     Dates: start: 201911

REACTIONS (2)
  - Cardiac arrest [Unknown]
  - Electrocardiogram QT prolonged [Unknown]
